FAERS Safety Report 8926296 (Version 9)
Quarter: 2015Q1

REPORT INFORMATION
  Report Type: Report from Study
  Country: CA (occurrence: CA)
  Receive Date: 20121126
  Receipt Date: 20150317
  Transmission Date: 20150721
  Serious: Yes (Hospitalization, Other)
  Sender: FDA-Public Use
  Company Number: PHHY2012CA107567

PATIENT
  Age: 19 Year
  Sex: Female

DRUGS (4)
  1. GILENYA [Suspect]
     Active Substance: FINGOLIMOD HYDROCHLORIDE
     Dosage: 0.5 MG, QD
     Route: 048
     Dates: start: 20140602
  2. GILENYA [Suspect]
     Active Substance: FINGOLIMOD HYDROCHLORIDE
     Indication: RELAPSING-REMITTING MULTIPLE SCLEROSIS
     Dosage: 0.5 MG, QD
     Route: 048
     Dates: start: 20121112, end: 20140515
  3. RITALIN [Concomitant]
     Active Substance: METHYLPHENIDATE HYDROCHLORIDE
     Indication: PRODUCT USED FOR UNKNOWN INDICATION
     Dosage: 10 MG, QD
     Route: 048
  4. CITALOPRAM [Concomitant]
     Active Substance: CITALOPRAM HYDROBROMIDE
     Indication: PRODUCT USED FOR UNKNOWN INDICATION
     Dosage: 40 MG, QD
     Route: 065

REACTIONS (14)
  - Ligament sprain [Unknown]
  - Multiple sclerosis relapse [Recovered/Resolved]
  - Optic neuritis [Recovered/Resolved]
  - Sensory disturbance [Recovered/Resolved]
  - Drug ineffective [Unknown]
  - Myelitis [Recovered/Resolved]
  - Road traffic accident [Unknown]
  - Cervicogenic headache [Recovering/Resolving]
  - Injury [Unknown]
  - Visual acuity reduced [Unknown]
  - Eye pain [Unknown]
  - Diplopia [Recovered/Resolved]
  - Blood pressure decreased [Recovering/Resolving]
  - Heart rate decreased [Recovering/Resolving]

NARRATIVE: CASE EVENT DATE: 20121113
